FAERS Safety Report 18338542 (Version 1)
Quarter: 2020Q4

REPORT INFORMATION
  Report Type: Spontaneous
  Country: BR (occurrence: BR)
  Receive Date: 20201002
  Receipt Date: 20201002
  Transmission Date: 20210113
  Serious: Yes (Other)
  Sender: FDA-Public Use
  Company Number: BR-PFIZER INC-2020379088

PATIENT
  Age: 6 Decade
  Sex: Female

DRUGS (2)
  1. LATONAN [Concomitant]
  2. XALATAN [Suspect]
     Active Substance: LATANOPROST
     Dosage: UNK
     Dates: start: 2000

REACTIONS (2)
  - Blindness unilateral [Unknown]
  - Angle closure glaucoma [Unknown]
